FAERS Safety Report 10192446 (Version 4)
Quarter: 2015Q1

REPORT INFORMATION
  Report Type: Report from Study
  Country: GB (occurrence: GB)
  Receive Date: 20140523
  Receipt Date: 20150227
  Transmission Date: 20150720
  Serious: Yes (Hospitalization)
  Sender: FDA-Public Use
  Company Number: GB-ABBVIE-14P-167-1231537-00

PATIENT
  Age: 41 Year
  Sex: Female
  Weight: 42 kg

DRUGS (36)
  1. CLINDAMYCIN [Concomitant]
     Active Substance: CLINDAMYCIN\CLINDAMYCIN PHOSPHATE
     Indication: RASH
     Dates: start: 20140303, end: 20140312
  2. PREDNISOLONE. [Concomitant]
     Active Substance: PREDNISOLONE
     Dosage: REDUCE 5MG Q7D TILL STOPPED
     Dates: start: 20130516, end: 20130627
  3. LOPERAMIDE [Concomitant]
     Active Substance: LOPERAMIDE
     Indication: GASTROINTESTINAL STOMA COMPLICATION
     Dates: start: 201109
  4. OXYCODONE [Concomitant]
     Active Substance: OXYCODONE
     Indication: PAIN
     Dates: start: 201109
  5. MOMETASONE [Concomitant]
     Active Substance: MOMETASONE
     Indication: RASH
     Route: 061
     Dates: start: 20140303, end: 20140317
  6. MAGNESIUM SULPHATE INFUSION [Concomitant]
     Indication: BLOOD MAGNESIUM DECREASED
     Dosage: 20 MMOL/10 ML STAT
     Dates: start: 20140303, end: 20140303
  7. NITROFURANTOIN. [Concomitant]
     Active Substance: NITROFURANTOIN
     Indication: URINARY TRACT INFECTION
     Dates: start: 20090919, end: 20090925
  8. HUMIRA [Suspect]
     Active Substance: ADALIMUMAB
     Route: 058
  9. ZANAMIVIR [Concomitant]
     Active Substance: ZANAMIVIR
     Indication: INFLUENZA
     Dates: start: 20121121, end: 20121130
  10. CETRABEN [Concomitant]
     Active Substance: PARAFFIN
     Indication: PRODUCT USED FOR UNKNOWN INDICATION
     Route: 061
     Dates: start: 20121220, end: 20130103
  11. DIORALYTE [Concomitant]
     Active Substance: CITRIC ACID MONOHYDRATE\DEXTROSE\POTASSIUM CATION\SODIUM CHLORIDE
     Indication: GASTROINTESTINAL STOMA COMPLICATION
     Dates: start: 201304
  12. AZATHIOPRINE. [Concomitant]
     Active Substance: AZATHIOPRINE
     Indication: IMMUNOSUPPRESSION
     Dates: start: 20130530
  13. LOTRIDERM [Concomitant]
     Active Substance: BETAMETHASONE DIPROPIONATE\CLOTRIMAZOLE
     Indication: RASH
     Route: 061
     Dates: start: 20140303, end: 20140331
  14. HUMIRA [Suspect]
     Active Substance: ADALIMUMAB
     Dosage: WEEK 2
     Route: 058
  15. ADCAL D3 [Concomitant]
     Active Substance: CALCIUM CARBONATE\CHOLECALCIFEROL
     Indication: OSTEOPOROSIS
     Dates: start: 20080901, end: 2012
  16. LANSOPRAZOLE. [Concomitant]
     Active Substance: LANSOPRAZOLE
     Indication: DYSPEPSIA
     Dates: start: 20121220, end: 201302
  17. CIPROFLOXACIN. [Concomitant]
     Active Substance: CIPROFLOXACIN
     Indication: INFECTION
     Dates: start: 20130418, end: 20130510
  18. 50:50 WHITE SOFT PARAFFIN: LIQUID PARAFFIN [Concomitant]
     Indication: RASH
     Dates: start: 20140303
  19. PREDNISONE. [Concomitant]
     Active Substance: PREDNISONE
     Indication: PRODUCT USED FOR UNKNOWN INDICATION
  20. FLUOXETINE [Concomitant]
     Active Substance: FLUOXETINE\FLUOXETINE HYDROCHLORIDE
     Indication: DEPRESSION
     Dates: start: 2006
  21. MAGNESIUM GLYCEROPHOSPHATE [Concomitant]
     Active Substance: MAGNESIUM GLYCEROPHOSPHATE
     Indication: BLOOD MAGNESIUM DECREASED
     Dates: start: 201112
  22. POTASSIUM W/SODIUM CHLORIDE [Concomitant]
     Active Substance: POTASSIUM
     Indication: BLOOD POTASSIUM DECREASED
     Dosage: OVER 72 HOURS
     Dates: start: 20130516, end: 20130518
  23. FUCIDIN H [Concomitant]
     Indication: RASH
     Route: 061
     Dates: start: 20140303, end: 20140317
  24. METHOTREXATE [Concomitant]
     Active Substance: METHOTREXATE
     Indication: CROHN^S DISEASE
     Dates: start: 2002, end: 200702
  25. HUMIRA [Suspect]
     Active Substance: ADALIMUMAB
     Indication: CROHN^S DISEASE
     Route: 058
     Dates: start: 20081101, end: 20081101
  26. OMEPRAZOLE. [Concomitant]
     Active Substance: OMEPRAZOLE
     Indication: GASTRIC PH DECREASED
     Dates: start: 201111, end: 20121220
  27. NITROFURANTOIN. [Concomitant]
     Active Substance: NITROFURANTOIN
     Dates: start: 20110721, end: 20110728
  28. HYDROXOCOBALAMIN [Concomitant]
     Active Substance: HYDROXOCOBALAMIN
     Indication: ANAEMIA
     Route: 030
     Dates: start: 20090916
  29. FOLIC ACID. [Concomitant]
     Active Substance: FOLIC ACID
     Indication: ANAEMIA
     Dates: start: 20090928
  30. PREDNISOLONE. [Concomitant]
     Active Substance: PREDNISOLONE
     Indication: CROHN^S DISEASE
     Dates: start: 20080201, end: 20090318
  31. PREGABALIN. [Concomitant]
     Active Substance: PREGABALIN
     Indication: ANALGESIC THERAPY
     Dates: start: 201110
  32. CALOGEN [Concomitant]
     Indication: NUTRITIONAL SUPPLEMENTATION
     Dates: start: 20121220
  33. OMEPRAZOLE MAGNESIUM. [Concomitant]
     Active Substance: OMEPRAZOLE MAGNESIUM
     Indication: GASTROINTESTINAL STOMA COMPLICATION
     Dates: start: 20130410
  34. FENTANYL. [Concomitant]
     Active Substance: FENTANYL
     Indication: PAIN MANAGEMENT
     Dates: start: 201109
  35. METRONIDAZOLE. [Concomitant]
     Active Substance: METRONIDAZOLE
     Indication: INFECTION
     Dates: start: 20130417, end: 20130510
  36. MAGNESIUM SULPHATE [Concomitant]
     Active Substance: MAGNESIUM SULFATE
     Indication: BLOOD MAGNESIUM DECREASED
     Dosage: 20 MMOL/10 ML GIVE IN SINGLE BOLUS
     Dates: start: 20130516, end: 20130516

REACTIONS (1)
  - Eczema [Recovered/Resolved]

NARRATIVE: CASE EVENT DATE: 20131201
